FAERS Safety Report 9381930 (Version 3)
Quarter: 2013Q4

REPORT INFORMATION
  Report Type: Spontaneous
  Country: US (occurrence: US)
  Receive Date: 20130703
  Receipt Date: 20131213
  Transmission Date: 20140711
  Serious: Yes (Death, Hospitalization, Other)
  Sender: FDA-Public Use
  Company Number: US-B.I. PHARMACEUTICALS,INC./RIDGEFIELD-2013-BI-18914BP

PATIENT
  Age: 81 Year
  Sex: Male
  Weight: 77.11 kg

DRUGS (13)
  1. PRADAXA [Suspect]
     Indication: ANTICOAGULANT THERAPY
     Dosage: 150 MG
     Route: 048
     Dates: start: 20110511
  2. PRADAXA [Suspect]
     Indication: ATRIAL FIBRILLATION
  3. MIRAPEX [Concomitant]
     Dosage: 1 MG
     Route: 048
  4. COREG [Concomitant]
     Dosage: 12.5 MG
     Route: 048
  5. LASIX [Concomitant]
     Indication: SWELLING
     Dosage: 40 MG
     Route: 048
  6. LASIX [Concomitant]
     Route: 048
  7. ALDACTAZIDE [Concomitant]
     Route: 048
  8. CALAN-SR [Concomitant]
     Dosage: 120 MG
     Route: 048
  9. LIPITOR [Concomitant]
     Dosage: 20 MG
     Route: 048
  10. PROSCAR [Concomitant]
     Dosage: 5 MG
     Route: 048
  11. LYRICA [Concomitant]
     Dosage: 150 MG
     Route: 048
  12. PRILOSEC [Concomitant]
     Dosage: 40 MG
     Route: 048
  13. POLYETHYLENE GLYCOL [Concomitant]
     Route: 048

REACTIONS (7)
  - Cerebral haemorrhage [Fatal]
  - Myocardial infarction [Unknown]
  - Gastrointestinal haemorrhage [Unknown]
  - Syncope [Unknown]
  - Fall [Unknown]
  - Acute respiratory failure [Unknown]
  - Pneumonia aspiration [Unknown]
